FAERS Safety Report 21824841 (Version 3)
Quarter: 2023Q1

REPORT INFORMATION
  Report Type: Spontaneous
  Country: FR (occurrence: FR)
  Receive Date: 20230105
  Receipt Date: 20230314
  Transmission Date: 20230418
  Serious: Yes (Death, Other)
  Sender: FDA-Public Use
  Company Number: FR-INCYTE CORPORATION-2023IN000019

PATIENT

DRUGS (6)
  1. TAFASITAMAB [Suspect]
     Active Substance: TAFASITAMAB
     Indication: Diffuse large B-cell lymphoma
     Dosage: 12 MG/KG
     Route: 065
     Dates: end: 20221201
  2. TAFASITAMAB [Suspect]
     Active Substance: TAFASITAMAB
     Dosage: 972 MILLIGRAM (12 MG/KG), ONCE A WEEK BY INFUSION
     Route: 065
     Dates: start: 20221012, end: 20221117
  3. REVLIMID [Concomitant]
     Active Substance: LENALIDOMIDE
     Indication: Product used for unknown indication
     Dosage: 25 MILLIGRAM
     Route: 065
  4. LENALIDOMIDE [Concomitant]
     Active Substance: LENALIDOMIDE
     Indication: Product used for unknown indication
  5. METOCLOPRAMIDE [Concomitant]
     Active Substance: METOCLOPRAMIDE
     Indication: Nausea
     Dosage: 10 MILLIGRAM EVERY 8 HRS
  6. TINZAPARIN SODIUM [Concomitant]
     Active Substance: TINZAPARIN SODIUM
     Indication: Deep vein thrombosis

REACTIONS (9)
  - Intra-abdominal haemorrhage [Fatal]
  - Diffuse large B-cell lymphoma [Fatal]
  - Disease progression [Fatal]
  - Deep vein thrombosis [Recovered/Resolved]
  - COVID-19 [Unknown]
  - Vein collapse [Unknown]
  - Lymphadenopathy [Unknown]
  - Nausea [Recovered/Resolved]
  - Asthenia [Recovered/Resolved]

NARRATIVE: CASE EVENT DATE: 20221019
